FAERS Safety Report 12463471 (Version 3)
Quarter: 2016Q4

REPORT INFORMATION
  Report Type: Report from Study
  Country: BR (occurrence: BR)
  Receive Date: 20160614
  Receipt Date: 20161107
  Transmission Date: 20170207
  Serious: Yes (Hospitalization, Other)
  Sender: FDA-Public Use
  Company Number: PHHY2016BR063678

PATIENT
  Age: 68 Year
  Sex: Male
  Weight: 82 kg

DRUGS (6)
  1. SANDOSTATIN LAR DEPOT [Suspect]
     Active Substance: OCTREOTIDE ACETATE
     Dosage: 20 MG, QMO (EVERY 28 DAYS)
     Route: 030
     Dates: start: 200209
  2. AMLODIPINE [Concomitant]
     Active Substance: AMLODIPINE BESYLATE
     Indication: BLOOD PRESSURE INCREASED
     Dosage: 2 DF, QD
     Route: 048
  3. SANDOSTATIN LAR DEPOT [Suspect]
     Active Substance: OCTREOTIDE ACETATE
     Indication: HEPATIC NEOPLASM
     Dosage: 20 MG, QMO (ONCE A MONTH/ MONTHLY)
     Route: 030
     Dates: start: 200109, end: 200112
  4. ATENOLOL. [Concomitant]
     Active Substance: ATENOLOL
     Indication: HYPERTENSION
     Dosage: 1 DF, QD
     Route: 048
  5. ENALAPRIL MALEATE. [Concomitant]
     Active Substance: ENALAPRIL MALEATE
     Indication: HYPERTENSION
     Dosage: 1 DF, QD
     Route: 048
  6. SANDOSTATIN LAR DEPOT [Suspect]
     Active Substance: OCTREOTIDE ACETATE
     Indication: NEUROENDOCRINE TUMOUR
     Dosage: 20 MG, QMO (EVERY 28 DAYS)
     Route: 030
     Dates: start: 200201

REACTIONS (14)
  - Dengue fever [Recovered/Resolved]
  - Platelet count decreased [Unknown]
  - Dysgeusia [Unknown]
  - Anxiety [Unknown]
  - Fatigue [Recovered/Resolved]
  - Carcinoid syndrome [Recovering/Resolving]
  - Vomiting [Recovered/Resolved]
  - Decreased appetite [Recovering/Resolving]
  - Diabetes mellitus [Recovering/Resolving]
  - Abdominal pain [Unknown]
  - Malaise [Unknown]
  - Hyperhidrosis [Recovered/Resolved]
  - Vitamin D deficiency [Unknown]
  - Weight decreased [Recovering/Resolving]

NARRATIVE: CASE EVENT DATE: 201605
